FAERS Safety Report 26044580 (Version 3)
Quarter: 2025Q4

REPORT INFORMATION
  Report Type: Report from Study
  Country: US (occurrence: US)
  Receive Date: 20251114
  Receipt Date: 20251208
  Transmission Date: 20260118
  Serious: No
  Sender: ABBVIE
  Company Number: US-ABBVIE-6124278

PATIENT
  Age: 70 Year
  Sex: Female
  Weight: 46.719 kg

DRUGS (2)
  1. SKYRIZI [Suspect]
     Active Substance: RISANKIZUMAB-RZAA
     Indication: Psoriasis
     Route: 058
     Dates: start: 20240718
  2. QUETIAPINE [Concomitant]
     Active Substance: QUETIAPINE
     Indication: Depression

REACTIONS (6)
  - Insomnia [Recovered/Resolved]
  - Psoriasis [Recovered/Resolved]
  - Fatigue [Recovered/Resolved]
  - Back pain [Not Recovered/Not Resolved]
  - Headache [Recovered/Resolved]
  - Therapeutic response shortened [Unknown]

NARRATIVE: CASE EVENT DATE: 20240101
